FAERS Safety Report 12971080 (Version 2)
Quarter: 2016Q4

REPORT INFORMATION
  Report Type: Spontaneous
  Country: US (occurrence: US)
  Receive Date: 20161123
  Receipt Date: 20161128
  Transmission Date: 20170207
  Serious: No
  Sender: FDA-Public Use
  Company Number: US-JAZZ-2016-US-016712

PATIENT
  Sex: Male

DRUGS (6)
  1. COLCHICINE. [Concomitant]
     Active Substance: COLCHICINE
  2. DEXTROAMPHET SACCHARAT, AMPHET ASPARTATE, DEXTROAMPHET SULFATE AND AMPHET SULFAT [Concomitant]
     Active Substance: AMPHETAMINE ASPARTATE\AMPHETAMINE SULFATE\DEXTROAMPHETAMINE SACCHARATE\DEXTROAMPHETAMINE SULFATE
  3. NUVIGIL [Concomitant]
     Active Substance: ARMODAFINIL
  4. MODAFINIL. [Concomitant]
     Active Substance: MODAFINIL
  5. XYREM [Suspect]
     Active Substance: SODIUM OXYBATE
     Dosage: 3 G, BID
     Route: 048
     Dates: start: 201609
  6. XYREM [Suspect]
     Active Substance: SODIUM OXYBATE
     Indication: NARCOLEPSY
     Dosage: 2.25 G, BID
     Route: 048
     Dates: start: 201608, end: 201609

REACTIONS (9)
  - Fatigue [Unknown]
  - Unevaluable event [Unknown]
  - Sedation [Unknown]
  - Paraesthesia [Not Recovered/Not Resolved]
  - Feeling drunk [Unknown]
  - Limb discomfort [Not Recovered/Not Resolved]
  - Thirst [Unknown]
  - Somnolence [Unknown]
  - Dehydration [Unknown]

NARRATIVE: CASE EVENT DATE: 2016
